FAERS Safety Report 17717204 (Version 2)
Quarter: 2020Q3

REPORT INFORMATION
  Report Type: Spontaneous
  Country: US (occurrence: US)
  Receive Date: 20200428
  Receipt Date: 20200814
  Transmission Date: 20201102
  Serious: Yes (Other)
  Sender: FDA-Public Use
  Company Number: US-MYLANLABS-2020M1040937

PATIENT
  Sex: Female
  Weight: 99.79 kg

DRUGS (36)
  1. ZITHROMAX [Concomitant]
     Active Substance: AZITHROMYCIN DIHYDRATE
     Dosage: 500 MILLIGRAM, (BY MOUTH ON DAY 1 AND 1 TABLET (250 MG)) ON DAYS 2?5
     Route: 048
     Dates: start: 20151203
  2. CLONIDINE                          /00171102/ [Concomitant]
     Active Substance: CLONIDINE
     Dosage: 0.1 MILLIGRAM, Q6H, (PRN)
     Route: 048
  3. COLACE [Concomitant]
     Active Substance: DOCUSATE SODIUM
     Dosage: 100 MILLIGRAM, BID
     Route: 048
  4. ZOFRAN [Concomitant]
     Active Substance: ONDANSETRON HYDROCHLORIDE
     Dosage: 4 MILLIGRAM, Q8H, (PRN)
     Route: 048
     Dates: start: 20180519
  5. ZOFRAN [Concomitant]
     Active Substance: ONDANSETRON HYDROCHLORIDE
     Dosage: 4 MILLIGRAM, Q8H, (PRN)/ 2MILLIGRAM PER MILLILITRE
     Route: 042
  6. PROTONIX [Concomitant]
     Active Substance: PANTOPRAZOLE SODIUM
     Dosage: 40 MILLIGRAM, (QAM AC)
     Route: 048
     Dates: start: 20180521
  7. VALSARTAN/HYDROCHLORTHIAZID [Suspect]
     Active Substance: HYDROCHLOROTHIAZIDE\VALSARTAN
     Dosage: UNK
     Dates: start: 20180926, end: 20190313
  8. NORVASC [Concomitant]
     Active Substance: AMLODIPINE BESYLATE
     Dosage: 5 MILLIGRAM, TOTAL, (BY MOUTH DAILY)
     Route: 048
  9. PROVERA [Concomitant]
     Active Substance: MEDROXYPROGESTERONE ACETATE
     Dosage: 10 MILLIGRAM, TOTAL, (BY MOUTH DAILY)
     Route: 048
     Dates: start: 20151020
  10. XANAX [Concomitant]
     Active Substance: ALPRAZOLAM
     Dosage: 0.25 MILLIGRAM, Q8H, (PRN)
     Route: 048
  11. LIPITOR [Concomitant]
     Active Substance: ATORVASTATIN CALCIUM
     Dosage: 10 MILLIGRAM, QD, (NIGHTLY)
     Route: 048
  12. DEXTROSE + SODIUM CHLORIDE [Concomitant]
     Dosage: 75 MILLILITRE PER HOUR
     Route: 042
  13. VALSARTAN AND HYDROCHLOROTHIAZIDE TABLETS, USP [Suspect]
     Active Substance: HYDROCHLOROTHIAZIDE\VALSARTAN
     Indication: HYPERTENSION
     Dosage: UNK
     Dates: start: 20140622, end: 20141017
  14. VALSARTAN/HYDROCHLORTHIAZID [Suspect]
     Active Substance: HYDROCHLOROTHIAZIDE\VALSARTAN
     Indication: HYPERTENSION
     Dosage: UNK
     Dates: start: 20150325, end: 20150623
  15. TUSSIONEX PENNKINETIC              /01438401/ [Concomitant]
     Indication: COUGH
     Dosage: 5 MILLILITER, BID, (AS NEEDED), (10?8 MG/5 ML)
     Dates: start: 20151203
  16. MORPHINE [Concomitant]
     Active Substance: MORPHINE
     Dosage: 2 MILLIGRAM, Q3H, (PRN)/ 2 MG/ML
     Route: 042
  17. LOVENOX [Concomitant]
     Active Substance: ENOXAPARIN SODIUM
     Indication: THROMBOSIS PROPHYLAXIS
     Dosage: 40 MILLIGRAM, QD
     Route: 058
     Dates: start: 20180520
  18. APRESOLINE HYDROCHLORIDE [Concomitant]
     Active Substance: HYDRALAZINE HYDROCHLORIDE
     Dosage: 10 MILLIGRAM, Q6H, (PRN)/ 2MILLIGRAM PER MILLILITRE
     Route: 042
     Dates: start: 20180521
  19. ASPIRIN                            /00002701/ [Concomitant]
     Active Substance: ASPIRIN
     Dosage: 300 MILLIGRAM, QD, (DAILY)
     Route: 054
  20. TEMAZEPAM. [Concomitant]
     Active Substance: TEMAZEPAM
     Dosage: 15 MILLIGRAM, PRN, (NIGHTLY)
     Route: 048
  21. ASPIRIN (E.C.) [Concomitant]
     Active Substance: ASPIRIN
     Dosage: 325 MILLIGRAM, QD
     Route: 048
     Dates: end: 2017
  22. COLACE [Concomitant]
     Active Substance: DOCUSATE SODIUM
     Dosage: 100 MILLIGRAM, BID
     Route: 048
     Dates: end: 20160619
  23. TYLENOL [Concomitant]
     Active Substance: ACETAMINOPHEN
     Dosage: 650 MILLIGRAM, Q6H, (PRN)
     Route: 048
     Dates: start: 20180519
  24. VALSARTAN/HYDROCHLORTHIAZID [Suspect]
     Active Substance: HYDROCHLOROTHIAZIDE\VALSARTAN
     Dosage: UNK
     Dates: start: 20160120, end: 20160519
  25. NORCO [Concomitant]
     Active Substance: ACETAMINOPHEN\HYDROCODONE BITARTRATE
     Dosage: UNK, Q6H, (PRN)
     Route: 048
     Dates: end: 20160619
  26. SODIUM CHLORIDE. [Concomitant]
     Active Substance: SODIUM CHLORIDE
     Dosage: UNK, PRN, (3?40 ML), (Q1 MIN)
     Route: 042
     Dates: start: 20180521
  27. MAALOX PLUS EXTRA STRENGTH [Concomitant]
     Dosage: 15 MILLILITER, Q4H, (PRN)
     Route: 048
  28. VALSARTAN/HYDROCHLORTHIAZID [Suspect]
     Active Substance: HYDROCHLOROTHIAZIDE\VALSARTAN
     Dosage: UNK
     Dates: start: 20160829, end: 20170607
  29. VALSARTAN/HYDROCHLORTHIAZID [Suspect]
     Active Substance: HYDROCHLOROTHIAZIDE\VALSARTAN
     Dosage: UNK
     Dates: start: 20170807, end: 20180114
  30. ASPIRIN (E.C.) [Concomitant]
     Active Substance: ASPIRIN
     Dosage: 325 MILLIGRAM, QD, (DAILY)
     Route: 048
     Dates: end: 20160619
  31. HEPARIN [Concomitant]
     Active Substance: HEPARIN SODIUM
     Dosage: 5000 UNITS/ML
     Route: 058
     Dates: end: 20160619
  32. DIOVAN [Concomitant]
     Active Substance: VALSARTAN
  33. PROTONIX [Concomitant]
     Active Substance: PANTOPRAZOLE SODIUM
     Dosage: 40 MILLIGRAM, (QAM AC)
     Route: 048
     Dates: start: 20160620
  34. SODIUM CHLORIDE. [Concomitant]
     Active Substance: SODIUM CHLORIDE
     Dosage: UNK, PRN (3?40ML) (Q1MIN)
     Route: 042
  35. MSIR [Concomitant]
     Active Substance: MORPHINE SULFATE
     Indication: PAIN
     Dosage: 0.5 TABLETS, (AS NEEDED FOR PAIN, UP TO 20 DOSES)
  36. PERI?COLACE                        /00936101/ [Concomitant]
     Indication: CONSTIPATION
     Dosage: UNK, QD, (AS NEEDED), (8.6?50 MG)
     Route: 048

REACTIONS (1)
  - Hepatic cancer [Unknown]
